FAERS Safety Report 9443435 (Version 3)
Quarter: 2013Q3

REPORT INFORMATION
  Report Type: Spontaneous
  Country: US (occurrence: None)
  Receive Date: 20130802
  Receipt Date: 20130913
  Transmission Date: 20140515
  Serious: Yes (Hospitalization)
  Sender: FDA-Public Use
  Company Number: AUR-APL-2013-06335

PATIENT
  Sex: Male

DRUGS (6)
  1. MELOXICAM [Suspect]
     Indication: ARTHRALGIA
     Dosage: 15 MG 1 IN 1 D
     Dates: start: 20130522, end: 201307
  2. MELOXICAM [Suspect]
     Indication: BACK PAIN
     Dosage: 15 MG 1 IN 1 D
     Dates: start: 20130522, end: 201307
  3. METFORMIN (METFORMIN) [Concomitant]
  4. LISINOPRIL (LISINOPRIL) [Concomitant]
  5. GLYBURIDE (GLIBENCLAMIDE) [Concomitant]
  6. SIMVASTATIN (SIMVASTATIN) [Concomitant]

REACTIONS (10)
  - Dizziness [None]
  - Syncope [None]
  - Gastrointestinal haemorrhage [None]
  - Fall [None]
  - Malaise [None]
  - Gastric haemorrhage [None]
  - Gastrointestinal ulcer haemorrhage [None]
  - Haematochezia [None]
  - Product physical issue [None]
  - Product quality issue [None]
